FAERS Safety Report 18500676 (Version 1)
Quarter: 2020Q4

REPORT INFORMATION
  Report Type: Spontaneous
  Country: US (occurrence: US)
  Receive Date: 20201112
  Receipt Date: 20201112
  Transmission Date: 20210114
  Serious: No
  Sender: FDA-Public Use
  Company Number: None

PATIENT
  Age: 78 Year
  Sex: Male
  Weight: 98.33 kg

DRUGS (1)
  1. FENTANYL TRANSDERMAL SYSTEM [Suspect]
     Active Substance: FENTANYL
     Indication: PAIN
     Dosage: ?          OTHER FREQUENCY:Q 72 HOURS;?
     Route: 062
     Dates: start: 20200930, end: 20201006

REACTIONS (7)
  - Anxiety [None]
  - Incoherent [None]
  - Pain [None]
  - Confusional state [None]
  - Drug interaction [None]
  - Delusion [None]
  - Agitation [None]

NARRATIVE: CASE EVENT DATE: 20201005
